FAERS Safety Report 5940833-3 (Version None)
Quarter: 2008Q4

REPORT INFORMATION
  Report Type: 
  Country: None (occurrence: None)
  Receive Date: 20081104
  Receipt Date: 20081024
  Transmission Date: 20090506
  Serious: Yes (Death)
  Sender: FDA-Public Use
  Company Number: US-ROCHE-591741

PATIENT
  Sex: Female
  Weight: 52.5 kg

DRUGS (20)
  1. METHOXY POLYETHYLENE GLYCOL-EPOETIN BETA [Suspect]
     Route: 042
     Dates: start: 20061124
  2. METHOXY POLYETHYLENE GLYCOL-EPOETIN BETA [Suspect]
     Dosage: DOSAGE FORM REPORTED AS SYRINGE
     Route: 042
     Dates: start: 20081009
  3. METHOXY POLYETHYLENE GLYCOL-EPOETIN BETA [Suspect]
     Route: 042
  4. DIATX [Concomitant]
     Dates: start: 20020725
  5. MINOXIDIL [Concomitant]
     Dates: start: 20060815
  6. HEPARIN [Concomitant]
     Dates: start: 20070922
  7. SYNTHROID [Concomitant]
     Dates: start: 20080124
  8. CLONIDINE [Concomitant]
     Dates: start: 20080125
  9. LOMOTIL [Concomitant]
     Dates: start: 20080125
  10. AMIODARONE HCL [Concomitant]
     Dates: start: 20080125
  11. ZOCOR [Concomitant]
     Dates: start: 20080204
  12. LOPRESSOR [Concomitant]
     Dates: start: 20080212
  13. PRILOSEC [Concomitant]
     Dates: start: 20080423
  14. LORTAB [Concomitant]
     Dates: start: 20080502
  15. ATARAX [Concomitant]
     Dates: start: 20080502
  16. NORVASC [Concomitant]
     Dates: start: 20080513
  17. NEURONTIN [Concomitant]
     Dates: start: 20080612
  18. PREMARIN [Concomitant]
     Dates: start: 20080624
  19. RENAGEL [Concomitant]
     Dates: start: 20080701
  20. ZEMPLAR [Concomitant]
     Dates: start: 20080919

REACTIONS (2)
  - DRUG DOSE OMISSION [None]
  - HAEMOGLOBIN DECREASED [None]
